FAERS Safety Report 19436034 (Version 3)
Quarter: 2021Q2

REPORT INFORMATION
  Report Type: Spontaneous
  Country: US (occurrence: US)
  Receive Date: 20210618
  Receipt Date: 20210630
  Transmission Date: 20210717
  Serious: No
  Sender: FDA-Public Use
  Company Number: US-AMGEN INC.-USASP2021093663

PATIENT
  Age: 51 Year
  Sex: Male

DRUGS (2)
  1. AIMOVIG [Suspect]
     Active Substance: ERENUMAB-AOOE
     Indication: OFF LABEL USE
  2. AIMOVIG [Suspect]
     Active Substance: ERENUMAB-AOOE
     Indication: DIABETES MELLITUS
     Dosage: 70 MILLIGRAM, QMO
     Route: 065
     Dates: start: 20210113

REACTIONS (4)
  - Off label use [Unknown]
  - Device difficult to use [Unknown]
  - Underdose [Unknown]
  - Wrong technique in product usage process [Unknown]

NARRATIVE: CASE EVENT DATE: 20210113
